FAERS Safety Report 8391296-2 (Version None)
Quarter: 2012Q2

REPORT INFORMATION
  Report Type: 
  Country: None (occurrence: None)
  Receive Date: 20120529
  Receipt Date: 20110707
  Transmission Date: 20120825
  Serious: No
  Sender: FDA-Public Use
  Company Number: US-ABBOTT-11P-163-0838432-00

PATIENT
  Sex: Female
  Weight: 53.118 kg

DRUGS (2)
  1. ZEMPLAR [Suspect]
     Indication: NEPHROPATHY
     Dates: start: 20110601
  2. VENTOLIN [Concomitant]
     Indication: DYSPNOEA
     Dates: start: 20100901

REACTIONS (1)
  - DYSPNOEA [None]
